FAERS Safety Report 16166198 (Version 1)
Quarter: 2019Q2

REPORT INFORMATION
  Report Type: Spontaneous
  Country: FR (occurrence: FR)
  Receive Date: 20190406
  Receipt Date: 20190406
  Transmission Date: 20190711
  Serious: Yes (Other)
  Sender: FDA-Public Use
  Company Number: FR-ACCORD-118680

PATIENT
  Age: 69 Year
  Sex: Male

DRUGS (4)
  1. CARBOPLATIN. [Suspect]
     Active Substance: CARBOPLATIN
     Indication: LYMPHOMA
     Route: 042
     Dates: start: 20140618, end: 20140811
  2. MABTHERA [Suspect]
     Active Substance: RITUXIMAB
     Indication: LYMPHOMA
     Route: 042
     Dates: start: 20140618, end: 20140811
  3. IFOSFAMIDE. [Suspect]
     Active Substance: IFOSFAMIDE
     Indication: LYMPHOMA
     Route: 042
     Dates: start: 20140618, end: 20140811
  4. ETOPOSIDE. [Suspect]
     Active Substance: ETOPOSIDE
     Indication: LYMPHOMA
     Route: 042
     Dates: start: 20140618, end: 20140811

REACTIONS (2)
  - Off label use [Unknown]
  - Hypokalaemia [Recovered/Resolved]

NARRATIVE: CASE EVENT DATE: 20140715
